FAERS Safety Report 18565663 (Version 1)
Quarter: 2020Q4

REPORT INFORMATION
  Report Type: Spontaneous
  Country: US (occurrence: US)
  Receive Date: 20201201
  Receipt Date: 20201201
  Transmission Date: 20210114
  Serious: No
  Sender: FDA-Public Use
  Company Number: None

PATIENT
  Age: 62 Year
  Sex: Female
  Weight: 90 kg

DRUGS (5)
  1. ZYRTEC [Concomitant]
     Active Substance: CETIRIZINE HYDROCHLORIDE
  2. KLONOPIN [Concomitant]
     Active Substance: CLONAZEPAM
  3. VITAMIN D3 [Concomitant]
     Active Substance: CHOLECALCIFEROL
  4. CALCIUM [Concomitant]
     Active Substance: CALCIUM
  5. MACROBID [Suspect]
     Active Substance: NITROFURANTOIN\NITROFURANTOIN MONOHYDRATE
     Indication: URINARY TRACT INFECTION
     Dosage: ?          QUANTITY:1 CAPSULE(S);?
     Route: 048
     Dates: start: 20201120, end: 20201126

REACTIONS (5)
  - Rash [None]
  - Urticaria [None]
  - Pyrexia [None]
  - Joint swelling [None]
  - Influenza like illness [None]

NARRATIVE: CASE EVENT DATE: 20201123
